FAERS Safety Report 8216308-8 (Version None)
Quarter: 2012Q1

REPORT INFORMATION
  Report Type: 
  Country: None (occurrence: None)
  Receive Date: 20120316
  Receipt Date: 20120308
  Transmission Date: 20120608
  Serious: Yes (Other)
  Sender: FDA-Public Use
  Company Number: PHFR2012GB001101

PATIENT
  Sex: Female
  Weight: 62.3 kg

DRUGS (3)
  1. FYBOGEL [Concomitant]
     Indication: CONSTIPATION
     Route: 048
  2. CLOZARIL [Suspect]
     Indication: SCHIZOPHRENIA
     Dosage: 325 MG, DAILY
     Route: 048
     Dates: start: 20010701
  3. MIRTAZAPINE [Concomitant]
     Indication: DEPRESSION
     Dosage: 15 MG, DAILY
     Route: 048
     Dates: start: 20120207

REACTIONS (8)
  - HAEMOGLOBIN DECREASED [None]
  - COELIAC DISEASE [None]
  - WHITE BLOOD CELL COUNT INCREASED [None]
  - PLATELET COUNT INCREASED [None]
  - BLOOD ALKALINE PHOSPHATASE INCREASED [None]
  - NEUTROPHIL COUNT INCREASED [None]
  - ANTIPSYCHOTIC DRUG LEVEL INCREASED [None]
  - MEAN CELL HAEMOGLOBIN DECREASED [None]
